FAERS Safety Report 23757243 (Version 1)
Quarter: 2024Q2

REPORT INFORMATION
  Report Type: Spontaneous
  Country: CN (occurrence: CN)
  Receive Date: 20240418
  Receipt Date: 20240418
  Transmission Date: 20240716
  Serious: Yes (Hospitalization)
  Sender: FDA-Public Use
  Company Number: CN-CSTONE PHARMACEUTICALS (SUZHOU) CO., LTD.-2024CN00268

PATIENT
  Age: 5 Year
  Sex: Female

DRUGS (2)
  1. AYVAKIT [Suspect]
     Active Substance: AVAPRITINIB
     Indication: Leukaemia
     Dosage: 50 MILLIGRAM, INTERMITTENT
     Route: 048
     Dates: start: 202212
  2. AYVAKIT [Suspect]
     Active Substance: AVAPRITINIB
     Dosage: 100 MILLIGRAM, UNKNOWN
     Route: 048
     Dates: start: 202301, end: 202309

REACTIONS (16)
  - Nerve injury [Not Recovered/Not Resolved]
  - Hallucination [Not Recovered/Not Resolved]
  - Mental disorder [Not Recovered/Not Resolved]
  - Communication disorder [Not Recovered/Not Resolved]
  - Soliloquy [Not Recovered/Not Resolved]
  - Insomnia [Not Recovered/Not Resolved]
  - Madarosis [Unknown]
  - Hypoacusis [Unknown]
  - Swelling face [Unknown]
  - Eyelid oedema [Unknown]
  - Hair colour changes [Unknown]
  - Generalised oedema [Unknown]
  - Oedema peripheral [Unknown]
  - Off label use [Unknown]
  - Off label use [Unknown]
  - Off label use [Unknown]

NARRATIVE: CASE EVENT DATE: 20221201
